FAERS Safety Report 15436170 (Version 1)
Quarter: 2018Q4

REPORT INFORMATION
  Report Type: Spontaneous
  Country: US (occurrence: US)
  Receive Date: 20180927
  Receipt Date: 20180927
  Transmission Date: 20190204
  Serious: No
  Sender: FDA-Public Use
  Company Number: US-PFIZER INC-2018385223

PATIENT
  Age: 40 Year
  Sex: Male

DRUGS (19)
  1. CERAVE ITCH RELIEF MOISTURIZING [Suspect]
     Active Substance: PRAMOXINE HYDROCHLORIDE
     Dosage: UNK
  2. BIOTIN [Suspect]
     Active Substance: BIOTIN
     Dosage: UNK
  3. SYNALAR [Suspect]
     Active Substance: FLUOCINOLONE ACETONIDE
     Dosage: UNK
  4. KENALOG [Suspect]
     Active Substance: TRIAMCINOLONE ACETONIDE
     Dosage: UNK
  5. TRETINOIN. [Suspect]
     Active Substance: TRETINOIN
     Dosage: UNK
  6. LIDOCAINE HCL [Suspect]
     Active Substance: LIDOCAINE HYDROCHLORIDE
     Dosage: UNK
  7. DESOWEN [Suspect]
     Active Substance: DESONIDE
     Dosage: UNK
  8. ROGAINE [Suspect]
     Active Substance: MINOXIDIL
     Dosage: UNK
  9. TRIAMCINOLONE [Suspect]
     Active Substance: TRIAMCINOLONE
     Dosage: UNK
  10. EPIDUO [Suspect]
     Active Substance: ADAPALENE\BENZOYL PEROXIDE
     Dosage: UNK
  11. LATISSE [Suspect]
     Active Substance: BIMATOPROST
     Dosage: UNK
  12. TEMOVATE [Suspect]
     Active Substance: CLOBETASOL PROPIONATE
     Dosage: UNK
  13. CLOBETASOL [Suspect]
     Active Substance: CLOBETASOL
     Dosage: UNK
  14. LIDEX [Suspect]
     Active Substance: FLUOCINONIDE
     Dosage: UNK
  15. ELIDEL [Suspect]
     Active Substance: PIMECROLIMUS
     Dosage: UNK
  16. SORIATANE [Suspect]
     Active Substance: ACITRETIN
     Dosage: UNK
  17. LUXIQ [Suspect]
     Active Substance: BETAMETHASONE VALERATE
     Dosage: UNK
  18. ZETIA [Suspect]
     Active Substance: EZETIMIBE
     Dosage: UNK
  19. PROTOPIC [Suspect]
     Active Substance: TACROLIMUS
     Dosage: UNK

REACTIONS (1)
  - Drug ineffective [Unknown]
